FAERS Safety Report 11921527 (Version 3)
Quarter: 2016Q4

REPORT INFORMATION
  Report Type: Report from Study
  Country: US (occurrence: US)
  Receive Date: 20160115
  Receipt Date: 20161007
  Transmission Date: 20170206
  Serious: Yes (Hospitalization)
  Sender: FDA-Public Use
  Company Number: US-SA-2016SA007580

PATIENT
  Age: 50 Year
  Sex: Male

DRUGS (1)
  1. LEMTRADA [Suspect]
     Active Substance: ALEMTUZUMAB
     Indication: MULTIPLE SCLEROSIS
     Route: 041
     Dates: start: 20151109, end: 20151113

REACTIONS (11)
  - Intervertebral disc protrusion [Not Recovered/Not Resolved]
  - Feeling abnormal [Not Recovered/Not Resolved]
  - Pulmonary embolism [Recovered/Resolved]
  - Rash [Recovered/Resolved]
  - Urinary tract infection [Recovered/Resolved]
  - Asthenia [Unknown]
  - Fatigue [Unknown]
  - Painful respiration [Unknown]
  - Depression [Unknown]
  - Deep vein thrombosis [Recovered/Resolved]
  - Back pain [Recovered/Resolved]

NARRATIVE: CASE EVENT DATE: 201512
